FAERS Safety Report 10263380 (Version 6)
Quarter: 2015Q3

REPORT INFORMATION
  Report Type: Spontaneous
  Country: US (occurrence: US)
  Receive Date: 20140626
  Receipt Date: 20150710
  Transmission Date: 20151125
  Serious: Yes (Hospitalization, Congenital Anomaly, Other)
  Sender: FDA-Public Use
  Company Number: US-ELI_LILLY_AND_COMPANY-US201406008853

PATIENT
  Age: 1 Year
  Sex: Female

DRUGS (6)
  1. TYLENOL [Concomitant]
     Active Substance: ACETAMINOPHEN
     Route: 064
  2. PROZAC [Suspect]
     Active Substance: FLUOXETINE HYDROCHLORIDE
     Indication: PRODUCT USED FOR UNKNOWN INDICATION
     Dosage: 10 MG, UNKNOWN
     Route: 064
  3. PITOCIN [Concomitant]
     Active Substance: OXYTOCIN
     Route: 064
  4. STADOL [Concomitant]
     Active Substance: BUTORPHANOL TARTRATE
     Route: 064
  5. PHENERGAN [Concomitant]
     Active Substance: PROMETHAZINE HYDROCHLORIDE
     Route: 064
  6. AMPICILLIN [Concomitant]
     Active Substance: AMPICILLIN
     Route: 064

REACTIONS (18)
  - Speech disorder [Unknown]
  - Weight gain poor [Unknown]
  - Thermal burn [Unknown]
  - Eustachian tube dysfunction [Unknown]
  - Cleft palate [Recovered/Resolved]
  - Feeding disorder of infancy or early childhood [Unknown]
  - Pneumonia [Unknown]
  - Postmature baby [Unknown]
  - Cyanosis neonatal [Recovered/Resolved]
  - Foetal exposure during pregnancy [Recovered/Resolved]
  - Cleft lip [Recovered/Resolved]
  - Exposure during breast feeding [Recovered/Resolved]
  - Otitis media [Unknown]
  - Pharyngitis [Unknown]
  - Velopharyngeal incompetence [Unknown]
  - Deafness [Unknown]
  - Sinusitis [Unknown]
  - Lip infection [Unknown]

NARRATIVE: CASE EVENT DATE: 20060912
